FAERS Safety Report 8301396-0 (Version None)
Quarter: 2012Q2

REPORT INFORMATION
  Report Type: 
  Country: None (occurrence: None)
  Receive Date: 20120420
  Receipt Date: 20120412
  Transmission Date: 20120825
  Serious: Yes (Disabling)
  Sender: FDA-Public Use
  Company Number: FR-EISAI INC-E3810-05452-SPO-FR

PATIENT
  Sex: Female

DRUGS (3)
  1. AMOXICILLIN [Suspect]
     Route: 048
     Dates: start: 20120101
  2. CLARITHROMYCIN [Concomitant]
  3. RABEPRAZOLE SODIUM [Suspect]
     Dosage: UNKNOWN
     Route: 048
     Dates: start: 20120101, end: 20120101

REACTIONS (3)
  - VERTIGO [None]
  - VOMITING [None]
  - NYSTAGMUS [None]
